FAERS Safety Report 24073641 (Version 1)
Quarter: 2024Q3

REPORT INFORMATION
  Report Type: Spontaneous
  Country: DE (occurrence: DE)
  Receive Date: 20240710
  Receipt Date: 20240710
  Transmission Date: 20241017
  Serious: Yes (Other)
  Sender: TEVA
  Company Number: None

PATIENT
  Sex: Female

DRUGS (3)
  1. CALCITRIOL [Suspect]
     Active Substance: CALCITRIOL
     Indication: Product used for unknown indication
     Route: 065
  2. LEVOTHYROXINE SODIUM [Concomitant]
     Active Substance: LEVOTHYROXINE SODIUM
     Indication: Product used for unknown indication
     Dosage: ONE TABLET DAILY
     Route: 065
  3. CALCITRIOL [Suspect]
     Active Substance: CALCITRIOL
     Indication: Thyroidectomy
     Dosage: 2-1-1?2 IN THE MORNING, ONE AT LUNCHTIME AND ONE IN THE EVENING
     Route: 048
     Dates: start: 20240512

REACTIONS (19)
  - Blood pressure increased [Unknown]
  - Feeling jittery [Unknown]
  - Fatigue [Unknown]
  - Hypoaesthesia [Unknown]
  - Dry mouth [Unknown]
  - Vulvovaginal dryness [Unknown]
  - Feeling hot [Unknown]
  - Palpitations [Unknown]
  - Condition aggravated [Unknown]
  - Depressed mood [Unknown]
  - Skin reaction [Unknown]
  - Mental disorder [Unknown]
  - Cardiac discomfort [Unknown]
  - Restlessness [Unknown]
  - Product substitution issue [Unknown]
  - Reaction to excipient [Unknown]
  - Libido increased [Unknown]
  - Oral discomfort [Unknown]
  - Nasopharyngitis [Unknown]

NARRATIVE: CASE EVENT DATE: 20240501
